FAERS Safety Report 5496739-X (Version None)
Quarter: 2007Q4

REPORT INFORMATION
  Report Type: 
  Country: None (occurrence: None)
  Receive Date: 20071025
  Receipt Date: 20070808
  Transmission Date: 20080405
  Serious: No
  Sender: FDA-Public Use
  Company Number: A0668928A

PATIENT
  Age: 55 Year
  Sex: Female

DRUGS (10)
  1. ADVAIR DISKUS 100/50 [Suspect]
     Indication: CHRONIC OBSTRUCTIVE PULMONARY DISEASE
     Dosage: 1PUFF TWICE PER DAY
     Route: 055
     Dates: start: 20050101, end: 20070601
  2. SPIRIVA [Concomitant]
  3. VITAMIN [Concomitant]
  4. CALCIUM [Concomitant]
  5. TRAZODONE HCL [Concomitant]
  6. TEGRETOL [Concomitant]
  7. SINGULAIR [Concomitant]
  8. PROTONIX [Concomitant]
  9. SEROQUEL [Concomitant]
  10. VISTARIL [Concomitant]

REACTIONS (1)
  - PHARYNGOLARYNGEAL PAIN [None]
